FAERS Safety Report 11788538 (Version 1)
Quarter: 2015Q4

REPORT INFORMATION
  Report Type: Spontaneous
  Country: US (occurrence: None)
  Receive Date: 20151127
  Receipt Date: 20151127
  Transmission Date: 20160305
  Serious: Yes (Other)
  Sender: FDA-Public Use
  Company Number: USA-2015-205

PATIENT
  Sex: Female

DRUGS (2)
  1. NO7 RESTORE AND RENEW DAY SUNSCREEN [Suspect]
     Active Substance: AVOBENZONE\OCTISALATE\OCTOCRYLENE
     Indication: PROPHYLAXIS AGAINST SOLAR RADIATION
     Dosage: DERMAL
     Dates: start: 201410, end: 201506
  2. NO7 PROTECT AND PERFECT DAY CREAM SUNSCREEN SPF 15 [Suspect]
     Active Substance: AVOBENZONE\OCTINOXATE\OCTISALATE
     Indication: PROPHYLAXIS AGAINST SOLAR RADIATION
     Dosage: DERMAL
     Dates: start: 201410, end: 201506

REACTIONS (9)
  - Arthralgia [None]
  - Dry mouth [None]
  - Asthenia [None]
  - Fatigue [None]
  - Arthritis [None]
  - Immune system disorder [None]
  - Gait disturbance [None]
  - Urinary tract infection [None]
  - Type III immune complex mediated reaction [None]

NARRATIVE: CASE EVENT DATE: 20150727
